FAERS Safety Report 8914274 (Version 1)
Quarter: 2012Q4

REPORT INFORMATION
  Report Type: Report from Study
  Country: CA (occurrence: CA)
  Receive Date: 20121119
  Receipt Date: 20121119
  Transmission Date: 20130627
  Serious: Yes (Other)
  Sender: FDA-Public Use
  Company Number: CA-JNJFOC-20121107345

PATIENT
  Age: 36 Year
  Sex: Male
  Weight: 105.24 kg

DRUGS (1)
  1. SIMPONI [Suspect]
     Indication: PSORIATIC ARTHROPATHY
     Dates: start: 20121113

REACTIONS (2)
  - Paraesthesia [Unknown]
  - Influenza [Unknown]
